FAERS Safety Report 25613849 (Version 1)
Quarter: 2025Q3

REPORT INFORMATION
  Report Type: Spontaneous
  Country: TH (occurrence: TH)
  Receive Date: 20250728
  Receipt Date: 20250728
  Transmission Date: 20251020
  Serious: Yes (Hospitalization)
  Sender: ELI LILLY AND COMPANY
  Company Number: TH-ELI_LILLY_AND_COMPANY-TH202507015937

PATIENT
  Age: 30 Year
  Sex: Female
  Weight: 42 kg

DRUGS (1)
  1. MOUNJARO [Suspect]
     Active Substance: TIRZEPATIDE
     Indication: Weight control
     Dosage: 2.5 MG, WEEKLY (1/W)
     Route: 058
     Dates: start: 20250715

REACTIONS (6)
  - Pyrexia [Recovering/Resolving]
  - Chills [Recovering/Resolving]
  - Food poisoning [Recovering/Resolving]
  - Heart rate increased [Recovering/Resolving]
  - Nausea [Not Recovered/Not Resolved]
  - Diarrhoea [Recovering/Resolving]

NARRATIVE: CASE EVENT DATE: 20250715
